FAERS Safety Report 19634581 (Version 8)
Quarter: 2024Q2

REPORT INFORMATION
  Report Type: Report from Study
  Country: CA (occurrence: CA)
  Receive Date: 20210729
  Receipt Date: 20240516
  Transmission Date: 20240716
  Serious: Yes (Hospitalization, Other)
  Sender: FDA-Public Use
  Company Number: CA-TAKEDA-2021TUS017645

PATIENT
  Age: 70 Year
  Sex: Male

DRUGS (8)
  1. HUMAN IMMUNOGLOBULIN G [Suspect]
     Active Substance: HUMAN IMMUNOGLOBULIN G
     Indication: Secondary immunodeficiency
     Dosage: 8 GRAM, 1/WEEK
     Route: 058
     Dates: start: 20201020
  2. HUMAN IMMUNOGLOBULIN G [Suspect]
     Active Substance: HUMAN IMMUNOGLOBULIN G
     Dosage: 8 GRAM, 1/WEEK
     Route: 050
  3. HUMAN IMMUNOGLOBULIN G [Suspect]
     Active Substance: HUMAN IMMUNOGLOBULIN G
     Dosage: 8 GRAM, 1/WEEK
     Route: 058
  4. HUMAN IMMUNOGLOBULIN G [Suspect]
     Active Substance: HUMAN IMMUNOGLOBULIN G
     Dosage: 8 GRAM, 1/WEEK
     Route: 050
  5. RITUXIMAB [Concomitant]
     Active Substance: RITUXIMAB
     Dosage: UNK
     Route: 065
     Dates: start: 201501, end: 201512
  6. NEUPOGEN [Concomitant]
     Active Substance: FILGRASTIM
     Indication: Neutropenia
     Dosage: UNK, 1/WEEK
     Route: 065
     Dates: start: 2015
  7. NEUPOGEN [Concomitant]
     Active Substance: FILGRASTIM
     Dosage: UNK, 1/WEEK
     Route: 065
     Dates: start: 202107
  8. TADALAFIL [Concomitant]
     Active Substance: TADALAFIL
     Dosage: 5 MILLIGRAM, QD
     Route: 065

REACTIONS (12)
  - Pancreatitis [Unknown]
  - Cholelithiasis [Unknown]
  - Neutropenia [Unknown]
  - Infusion site scar [Recovered/Resolved]
  - Weight decreased [Unknown]
  - Post procedural complication [Unknown]
  - Sensitive skin [Unknown]
  - Lack of infusion site rotation [Unknown]
  - Device infusion issue [Unknown]
  - Product availability issue [Unknown]
  - Incorrect drug administration rate [Unknown]
  - Inappropriate schedule of product administration [Unknown]

NARRATIVE: CASE EVENT DATE: 20201001
